FAERS Safety Report 25478261 (Version 1)
Quarter: 2025Q2

REPORT INFORMATION
  Report Type: Report from Study
  Country: FR (occurrence: FR)
  Receive Date: 20250625
  Receipt Date: 20250625
  Transmission Date: 20250716
  Serious: Yes (Hospitalization)
  Sender: FRESENIUS KABI
  Company Number: FR-FreseniusKabi-FK202508555

PATIENT
  Sex: Male
  Weight: 80 kg

DRUGS (1)
  1. IDACIO [Suspect]
     Active Substance: ADALIMUMAB-AACF
     Indication: Crohn^s disease
     Route: 058
     Dates: start: 20240531, end: 20250404

REACTIONS (5)
  - Renal failure [Unknown]
  - Diarrhoea [Unknown]
  - Gastroenteritis [Unknown]
  - Vomiting [Unknown]
  - Cardiac disorder [Unknown]

NARRATIVE: CASE EVENT DATE: 20250404
